FAERS Safety Report 6650010-9 (Version None)
Quarter: 2010Q1

REPORT INFORMATION
  Report Type: 
  Country: None (occurrence: None)
  Receive Date: 20100325
  Receipt Date: 20100322
  Transmission Date: 20100710
  Serious: Yes (Hospitalization, Other)
  Sender: FDA-Public Use
  Company Number: US-BAYER-201015388NA

PATIENT
  Age: 34 Year
  Sex: Female

DRUGS (2)
  1. BETASERON [Suspect]
     Indication: RELAPSING-REMITTING MULTIPLE SCLEROSIS
     Route: 058
     Dates: start: 19980201, end: 20030101
  2. BETASERON [Suspect]
     Route: 065
     Dates: start: 19950101, end: 19970101

REACTIONS (2)
  - MULTIPLE SCLEROSIS RELAPSE [None]
  - NO ADVERSE EVENT [None]
